FAERS Safety Report 10641263 (Version 1)
Quarter: 2014Q4

REPORT INFORMATION
  Report Type: Spontaneous
  Country: IT (occurrence: None)
  Receive Date: 20141208
  Receipt Date: 20141208
  Transmission Date: 20150529
  Serious: Yes (Hospitalization)
  Sender: FDA-Public Use
  Company Number: 2014MPI01563

PATIENT
  Age: 22 Year
  Sex: Male

DRUGS (3)
  1. ADCETRIS [Suspect]
     Active Substance: BRENTUXIMAB VEDOTIN
     Indication: ANAPLASTIC LARGE CELL LYMPHOMA T- AND NULL-CELL TYPES
     Route: 042
     Dates: start: 20141021, end: 20141113
  2. OMEPRAZOLE. [Concomitant]
     Active Substance: OMEPRAZOLE
  3. BACTRIM [Concomitant]
     Active Substance: SULFAMETHOXAZOLE\TRIMETHOPRIM

REACTIONS (2)
  - Chest pain [None]
  - Dyspnoea [None]

NARRATIVE: CASE EVENT DATE: 20141113
